FAERS Safety Report 24428464 (Version 4)
Quarter: 2025Q1

REPORT INFORMATION
  Report Type: Spontaneous
  Country: US (occurrence: US)
  Receive Date: 20241011
  Receipt Date: 20250113
  Transmission Date: 20250408
  Serious: No
  Sender: PFIZER
  Company Number: US-PFIZER INC-PV202400131213

PATIENT
  Age: 55 Year
  Sex: Female

DRUGS (3)
  1. CIBINQO [Interacting]
     Active Substance: ABROCITINIB
     Dosage: 100 MG, DAILY
  2. CIBINQO [Interacting]
     Active Substance: ABROCITINIB
     Dosage: 50 MG, DAILY(EVERY DAY)
  3. FLUOXETINE [Interacting]
     Active Substance: FLUOXETINE HYDROCHLORIDE

REACTIONS (4)
  - Drug interaction [Unknown]
  - Acne [Unknown]
  - Blood test abnormal [Recovered/Resolved]
  - Condition aggravated [Unknown]
